FAERS Safety Report 10064570 (Version 1)
Quarter: 2014Q2

REPORT INFORMATION
  Report Type: Spontaneous
  Country: US (occurrence: None)
  Receive Date: 20140407
  Receipt Date: 20140407
  Transmission Date: 20141212
  Serious: Yes (Other)
  Sender: FDA-Public Use
  Company Number: None

PATIENT
  Age: 86 Year
  Sex: Male
  Weight: 60 kg

DRUGS (5)
  1. EXJADE 500MG NOVARTIS [Suspect]
     Indication: MYELODYSPLASTIC SYNDROME
     Dates: start: 20140314, end: 20140320
  2. EXJADE 500MG NOVARTIS [Suspect]
     Indication: BLOOD IRON DECREASED
     Dates: start: 20140314, end: 20140320
  3. REVLIMID 5MG CELGENE [Suspect]
     Indication: PLASMA CELL MYELOMA
     Route: 048
  4. PREDNISONE [Concomitant]
  5. AMLODIPINE [Concomitant]

REACTIONS (1)
  - Rash [None]
